FAERS Safety Report 7889111-6 (Version None)
Quarter: 2011Q4

REPORT INFORMATION
  Report Type: 
  Country: None (occurrence: None)
  Receive Date: 20111101
  Receipt Date: 20111018
  Transmission Date: 20120403
  Serious: Yes (Hospitalization)
  Sender: FDA-Public Use
  Company Number: DSA_48019_2011

PATIENT
  Sex: Female

DRUGS (1)
  1. WELLBUTRIN XL [Suspect]
     Indication: DEPRESSION
     Dosage: 300 MG QD ORAL
     Route: 048
     Dates: start: 20110803, end: 20111015

REACTIONS (9)
  - CONVULSION [None]
  - HYPOPHAGIA [None]
  - TONGUE BITING [None]
  - VOMITING [None]
  - ELECTROCARDIOGRAM QT PROLONGED [None]
  - GENERAL PHYSICAL HEALTH DETERIORATION [None]
  - LYMPHOPENIA [None]
  - TREMOR [None]
  - FATIGUE [None]
